FAERS Safety Report 12120178 (Version 1)
Quarter: 2016Q1

REPORT INFORMATION
  Report Type: Report from Study
  Country: US (occurrence: US)
  Receive Date: 20160226
  Receipt Date: 20160226
  Transmission Date: 20160526
  Serious: Yes (Other)
  Sender: FDA-Public Use
  Company Number: US-BRISTOL-MYERS SQUIBB COMPANY-21009568

PATIENT
  Age: 69 Year
  Sex: Male
  Weight: 94.2 kg

DRUGS (2)
  1. IPILIMUMAB [Suspect]
     Active Substance: IPILIMUMAB
     Indication: MALIGNANT MELANOMA
     Dosage: 278 MG, UNK
     Route: 042
     Dates: start: 20140519, end: 20140519
  2. INTERFERON ALFA NOS [Suspect]
     Active Substance: INTERFERON ALFA-2A OR INTERFERON ALFA-2B
     Indication: MALIGNANT MELANOMA
     Dosage: INTERRUPTED: 23MAY2014.  RESTARTED
     Route: 065

REACTIONS (3)
  - Lymphocyte count decreased [Unknown]
  - Hyponatraemia [Unknown]
  - Blood creatine phosphokinase increased [Recovered/Resolved with Sequelae]

NARRATIVE: CASE EVENT DATE: 20140527
